FAERS Safety Report 11038339 (Version 6)
Quarter: 2016Q2

REPORT INFORMATION
  Report Type: Spontaneous
  Country: US (occurrence: US)
  Receive Date: 20150416
  Receipt Date: 20160608
  Transmission Date: 20160815
  Serious: Yes (Hospitalization, Disabling, Other)
  Sender: FDA-Public Use
  Company Number: US-009507513-1504USA010803

PATIENT
  Sex: Female
  Weight: 89.34 kg

DRUGS (3)
  1. FOSAMAX [Suspect]
     Active Substance: ALENDRONATE SODIUM
     Dosage: 70 MG, QW
     Route: 048
     Dates: start: 200207, end: 201012
  2. ALENDRONATE SODIUM. [Suspect]
     Active Substance: ALENDRONATE SODIUM
     Indication: OSTEOPOROSIS
     Dosage: 70 MG, QW
     Route: 048
     Dates: start: 20090706, end: 201412
  3. FOSAMAX [Suspect]
     Active Substance: ALENDRONATE SODIUM
     Indication: OSTEOPOROSIS
     Dosage: 10 MG, QD
     Route: 048
     Dates: start: 199907, end: 200207

REACTIONS (10)
  - Rib fracture [Unknown]
  - Hyperlipidaemia [Unknown]
  - Joint instability [Unknown]
  - Deep vein thrombosis [Unknown]
  - Hypertension [Unknown]
  - Pubis fracture [Unknown]
  - Fall [Unknown]
  - Femur fracture [Recovering/Resolving]
  - Diabetes mellitus [Unknown]
  - Atrial fibrillation [Unknown]

NARRATIVE: CASE EVENT DATE: 2000
